FAERS Safety Report 12621134 (Version 4)
Quarter: 2016Q3

REPORT INFORMATION
  Report Type: Spontaneous
  Country: GB (occurrence: GB)
  Receive Date: 20160804
  Receipt Date: 20160913
  Transmission Date: 20161109
  Serious: Yes (Hospitalization, Other)
  Sender: FDA-Public Use
  Company Number: GB-BRISTOL-MYERS SQUIBB COMPANY-BMS-2016-062822

PATIENT
  Age: 62 Year
  Sex: Male

DRUGS (1)
  1. KENALOG [Suspect]
     Active Substance: TRIAMCINOLONE ACETONIDE
     Indication: ARTHRALGIA
     Dosage: 40 MG/ML, UNK
     Route: 014
     Dates: start: 20160505

REACTIONS (2)
  - Arthralgia [Unknown]
  - Staphylococcal infection [Unknown]
